FAERS Safety Report 7346604-8 (Version None)
Quarter: 2011Q1

REPORT INFORMATION
  Report Type: 
  Country: None (occurrence: None)
  Receive Date: 20110311
  Receipt Date: 20110302
  Transmission Date: 20110831
  Serious: Yes (Hospitalization)
  Sender: FDA-Public Use
  Company Number: NL-MEDIMMUNE-MEDI-0012674

PATIENT
  Sex: Male
  Weight: 6.5 kg

DRUGS (2)
  1. SYNAGIS [Suspect]
     Route: 030
     Dates: start: 20100907, end: 20100907
  2. SYNAGIS [Suspect]
     Route: 030
     Dates: start: 20110214, end: 20110214

REACTIONS (3)
  - PYREXIA [None]
  - GASTROENTERITIS VIRAL [None]
  - INFECTION [None]
